FAERS Safety Report 4283755-9 (Version None)
Quarter: 2004Q1

REPORT INFORMATION
  Report Type: 
  Country: None (occurrence: None)
  Receive Date: 20040130
  Receipt Date: 20040130
  Transmission Date: 20041129
  Serious: No
  Sender: FDA-Public Use
  Company Number: None

PATIENT
  Age: 64 Year
  Sex: Female
  Weight: 72.6 kg

DRUGS (8)
  1. RIFAMPIN 300MG UDL: [Suspect]
     Indication: ABSCESS LIMB
     Dosage: 600MG DAILY ORAL
     Route: 048
     Dates: start: 20040127, end: 20040127
  2. RIFAMPIN 300MG UDL: [Suspect]
     Indication: STAPHYLOCOCCAL INFECTION
     Dosage: 600MG DAILY ORAL
     Route: 048
     Dates: start: 20040127, end: 20040127
  3. VANCOMYCIN [Concomitant]
  4. LEVOTHYROID [Concomitant]
  5. ZINC SULFATE [Concomitant]
  6. MULTI-VITAMINS [Concomitant]
  7. ENOXAPARIN SODIUM [Concomitant]
  8. METOCLOPRAMIDE [Concomitant]

REACTIONS (1)
  - RASH PAPULAR [None]
